FAERS Safety Report 10640722 (Version 2)
Quarter: 2014Q4

REPORT INFORMATION
  Report Type: Spontaneous
  Country: US (occurrence: US)
  Receive Date: 20141209
  Receipt Date: 20141218
  Transmission Date: 20150529
  Serious: Yes (Other)
  Sender: FDA-Public Use
  Company Number: US-ASTRAZENECA-2014SE92823

PATIENT
  Age: 48 Year
  Sex: Female

DRUGS (2)
  1. AROMASIN [Concomitant]
     Active Substance: EXEMESTANE
  2. ARIMIDEX [Suspect]
     Active Substance: ANASTROZOLE
     Route: 048

REACTIONS (4)
  - Breast cancer female [Unknown]
  - Progesterone receptor assay positive [Unknown]
  - Osteoporosis [Unknown]
  - Oestrogen receptor assay positive [Unknown]

NARRATIVE: CASE EVENT DATE: 2009
